FAERS Safety Report 5375794-1 (Version None)
Quarter: 2007Q2

REPORT INFORMATION
  Report Type: 
  Country: None (occurrence: None)
  Receive Date: 20070629
  Receipt Date: 20070622
  Transmission Date: 20071010
  Serious: Yes (Death, Congenital Anomaly)
  Sender: FDA-Public Use
  Company Number: FR-ABBOTT-04P-163-0250893-00

PATIENT
  Age: 1 Day
  Sex: Male

DRUGS (1)
  1. KALETRA [Suspect]
     Indication: DRUG EXPOSURE DURING PREGNANCY

REACTIONS (2)
  - ATRIOVENTRICULAR SEPTAL DEFECT [None]
  - TRISOMY 21 [None]
